FAERS Safety Report 5602905-2 (Version None)
Quarter: 2008Q1

REPORT INFORMATION
  Report Type: 
  Country: None (occurrence: None)
  Receive Date: 20080125
  Receipt Date: 20080123
  Transmission Date: 20080703
  Serious: No
  Sender: FDA-Public Use
  Company Number: US-BOEHRINGER INGELHEIM PHARMACEUTICALS, INC.-2007-BP-24817BP

PATIENT
  Sex: Male

DRUGS (7)
  1. FLOMAX [Suspect]
     Indication: BENIGN PROSTATIC HYPERPLASIA
     Route: 048
     Dates: start: 20070515
  2. FLOMAX [Suspect]
     Indication: PROSTATIC DISORDER
  3. ZETIA [Concomitant]
  4. SIMVASTATIN [Concomitant]
  5. PROTONIX [Concomitant]
  6. ASPIRIN [Concomitant]
  7. FISH OIL CONCENTRATE [Concomitant]

REACTIONS (2)
  - EPISTAXIS [None]
  - RHINORRHOEA [None]
